FAERS Safety Report 8222326-6 (Version None)
Quarter: 2012Q1

REPORT INFORMATION
  Report Type: 
  Country: None (occurrence: None)
  Receive Date: 20120320
  Receipt Date: 20120316
  Transmission Date: 20120608
  Serious: Yes (Hospitalization)
  Sender: FDA-Public Use
  Company Number: FR-GLAXOSMITHKLINE-Z0009277A

PATIENT
  Sex: Female
  Weight: 68 kg

DRUGS (4)
  1. LAPATINIB [Suspect]
     Indication: BREAST CANCER METASTATIC
     Dosage: 1250MG PER DAY
     Route: 048
     Dates: start: 20100204
  2. CAPECITABINE [Suspect]
     Indication: BREAST CANCER METASTATIC
     Dosage: 2000MGM2 CYCLIC
     Route: 048
     Dates: start: 20100204
  3. LASIX [Concomitant]
     Indication: LEFT VENTRICULAR DYSFUNCTION
     Dosage: 20MG UNKNOWN
     Route: 048
     Dates: start: 20110413, end: 20110516
  4. DIGOXIN [Concomitant]
     Indication: VENTRICULAR DYSFUNCTION
     Dosage: .25MG UNKNOWN
     Route: 048
     Dates: start: 20110413, end: 20110516

REACTIONS (1)
  - GASTROOESOPHAGEAL REFLUX DISEASE [None]
